FAERS Safety Report 5009831-0 (Version None)
Quarter: 2006Q2

REPORT INFORMATION
  Report Type: 
  Country: None (occurrence: None)
  Receive Date: 20060523
  Receipt Date: 20060523
  Transmission Date: 20061013
  Serious: No
  Sender: FDA-Public Use
  Company Number: None

PATIENT
  Age: 73 Year
  Sex: Female
  Weight: 68 kg

DRUGS (1)
  1. LOVENOX [Suspect]
     Indication: COAGULOPATHY
     Dosage: 70MG SQ Q 12
     Route: 058

REACTIONS (4)
  - HAEMATOCRIT DECREASED [None]
  - HAEMATOMA [None]
  - OEDEMA PERIPHERAL [None]
  - SWELLING [None]
